FAERS Safety Report 6728487-X (Version None)
Quarter: 2010Q2

REPORT INFORMATION
  Report Type: 
  Country: None (occurrence: None)
  Receive Date: 20100517
  Receipt Date: 20100510
  Transmission Date: 20101027
  Serious: Yes (Other)
  Sender: FDA-Public Use
  Company Number: GB-PFIZER INC-2010035605

PATIENT
  Age: 36 Year
  Sex: Female
  Weight: 106 kg

DRUGS (1)
  1. CHAMPIX [Suspect]
     Dosage: 500 UG, UNK
     Route: 048
     Dates: start: 20100315, end: 20100329

REACTIONS (6)
  - CHEST DISCOMFORT [None]
  - CONFUSIONAL STATE [None]
  - DISTURBANCE IN ATTENTION [None]
  - DYSPNOEA [None]
  - HEADACHE [None]
  - MALAISE [None]
